FAERS Safety Report 23417037 (Version 1)
Quarter: 2024Q1

REPORT INFORMATION
  Report Type: Spontaneous
  Country: FR (occurrence: FR)
  Receive Date: 20240118
  Receipt Date: 20240118
  Transmission Date: 20240410
  Serious: Yes (Other)
  Sender: FDA-Public Use
  Company Number: FR-BAXTER-2024BAX010576

PATIENT
  Sex: Female

DRUGS (1)
  1. NUTRINEAL PD4 [Suspect]
     Active Substance: AMINO ACIDS\CALCIUM CHLORIDE\MAGNESIUM CHLORIDE\SODIUM CHLORIDE\SODIUM LACTATE
     Route: 033

REACTIONS (4)
  - Pneumobilia [Unknown]
  - Chest pain [Unknown]
  - Arthralgia [Unknown]
  - Feeling abnormal [Unknown]
